FAERS Safety Report 24580894 (Version 1)
Quarter: 2024Q4

REPORT INFORMATION
  Report Type: Spontaneous
  Country: CA (occurrence: CA)
  Receive Date: 20241105
  Receipt Date: 20241105
  Transmission Date: 20250114
  Serious: Yes (Hospitalization, Disabling, Other)
  Sender: SANDOZ
  Company Number: CA-SANDOZ-SDZ2024CA092307

PATIENT
  Age: 73 Year
  Sex: Female
  Weight: 81 kg

DRUGS (2)
  1. MOMETASONE FUROATE [Interacting]
     Active Substance: MOMETASONE FUROATE
     Indication: Chronic obstructive pulmonary disease
     Dosage: 400 UG, QD
     Route: 055
  2. SPORANOX [Interacting]
     Active Substance: ITRACONAZOLE
     Indication: Onychomycosis
     Dosage: 200 MG, QD
     Route: 065

REACTIONS (4)
  - Adrenal insufficiency [Recovering/Resolving]
  - Cushing^s syndrome [Recovering/Resolving]
  - Diabetes mellitus [Recovering/Resolving]
  - Drug interaction [Recovering/Resolving]
